FAERS Safety Report 11641443 (Version 1)
Quarter: 2015Q4

REPORT INFORMATION
  Report Type: Spontaneous
  Country: CN (occurrence: CN)
  Receive Date: 20151019
  Receipt Date: 20151019
  Transmission Date: 20160304
  Serious: Yes (Death, Other)
  Sender: FDA-Public Use
  Company Number: PHHY2015CN124841

PATIENT
  Age: 14 Year
  Sex: Female

DRUGS (6)
  1. CYCLOPHOSPHAMIDE. [Suspect]
     Active Substance: CYCLOPHOSPHAMIDE
     Indication: MICROSCOPIC POLYANGIITIS
     Dosage: 0.75 G/M2/MONTH
     Route: 065
  2. CYCLOPHOSPHAMIDE. [Suspect]
     Active Substance: CYCLOPHOSPHAMIDE
     Dosage: 0.5-0.75 G/M2 EVERY 3 MONTHS
     Route: 065
  3. METHYLPREDNISOLONE. [Suspect]
     Active Substance: METHYLPREDNISOLONE
     Indication: MICROSCOPIC POLYANGIITIS
     Dosage: 7.5-15 MG/KG, QOD
     Route: 065
  4. THIAMAZOLE [Suspect]
     Active Substance: METHIMAZOLE
     Indication: HYPERTHYROIDISM
  5. PREDNISONE. [Suspect]
     Active Substance: PREDNISONE
     Dosage: 5-10 MG/KG, QD
     Route: 065
  6. PREDNISONE. [Suspect]
     Active Substance: PREDNISONE
     Indication: MICROSCOPIC POLYANGIITIS
     Dosage: 1-2 MG/KG, QD
     Route: 065

REACTIONS (5)
  - Sepsis [Fatal]
  - Pneumonia [Fatal]
  - Chronic kidney disease [Unknown]
  - Microscopic polyangiitis [Unknown]
  - Therapeutic response decreased [Unknown]
